FAERS Safety Report 5176126-4 (Version None)
Quarter: 2006Q4

REPORT INFORMATION
  Report Type: 
  Country: None (occurrence: None)
  Receive Date: 20061215
  Receipt Date: 20060627
  Transmission Date: 20070319
  Serious: No
  Sender: FDA-Public Use
  Company Number: US-AMGEN-KDL184615

PATIENT
  Sex: Male

DRUGS (2)
  1. ENBREL [Suspect]
     Indication: PSORIATIC ARTHROPATHY
     Route: 058
     Dates: start: 20050101
  2. ENBREL [Suspect]
     Indication: PSORIASIS

REACTIONS (4)
  - INFLAMMATION [None]
  - PRURITUS [None]
  - SINUS CONGESTION [None]
  - SNEEZING [None]
